FAERS Safety Report 5939235-5 (Version None)
Quarter: 2008Q4

REPORT INFORMATION
  Report Type: 
  Country: None (occurrence: None)
  Receive Date: 20081103
  Receipt Date: 20081028
  Transmission Date: 20090506
  Serious: Yes (Hospitalization, Other)
  Sender: FDA-Public Use
  Company Number: US-AMGEN-US311867

PATIENT
  Sex: Female

DRUGS (16)
  1. ENBREL [Suspect]
     Indication: RHEUMATOID ARTHRITIS
     Route: 058
     Dates: start: 20041120
  2. METHOTREXATE [Concomitant]
     Route: 048
     Dates: start: 20070101
  3. METHOTREXATE [Concomitant]
     Dates: start: 20001012
  4. PROVERA [Concomitant]
     Dates: start: 20001012
  5. ASPIRIN [Concomitant]
  6. ACTONEL [Concomitant]
     Dates: start: 20081022
  7. SYNTHROID [Concomitant]
     Dates: start: 20001012
  8. ALPRAZOLAM [Concomitant]
     Dates: start: 20001012
  9. FOLIC ACID [Concomitant]
     Dates: start: 20001012
  10. COREG [Concomitant]
     Dates: start: 20001012
  11. ZOLOFT [Concomitant]
     Dates: start: 20001012
  12. CALCIUM [Concomitant]
     Dates: start: 20001012
  13. TRAZODONE HCL [Concomitant]
     Dates: start: 20001012
  14. NEURONTIN [Concomitant]
     Dates: start: 20031023
  15. DARVOCET-N 100 [Concomitant]
     Dates: start: 20050809
  16. PERCOCET [Concomitant]

REACTIONS (7)
  - ARTHRALGIA [None]
  - HAND DEFORMITY [None]
  - JOINT SWELLING [None]
  - MIGRAINE [None]
  - MUSCULOSKELETAL STIFFNESS [None]
  - RHEUMATOID ARTHRITIS [None]
  - TRANSIENT ISCHAEMIC ATTACK [None]
